FAERS Safety Report 5706215-4 (Version None)
Quarter: 2008Q2

REPORT INFORMATION
  Report Type: 
  Country: None (occurrence: None)
  Receive Date: 20080415
  Receipt Date: 20080414
  Transmission Date: 20081010
  Serious: Yes (Death)
  Sender: FDA-Public Use
  Company Number: FR-BOEHRINGER INGELHEIM GMBH, GERMANY-2007-DE-04598GD

PATIENT

DRUGS (3)
  1. MORPHINE [Suspect]
     Indication: PROCEDURAL PAIN
     Route: 042
  2. PARACETAMOL [Concomitant]
     Indication: PROCEDURAL PAIN
     Route: 051
  3. DROPERIDOL [Concomitant]
     Route: 042

REACTIONS (1)
  - CHYLOTHORAX [None]
